FAERS Safety Report 9699236 (Version 2)
Quarter: 2013Q4

REPORT INFORMATION
  Report Type: Spontaneous
  Country: US (occurrence: US)
  Receive Date: 20131120
  Receipt Date: 20131120
  Transmission Date: 20140711
  Serious: No
  Sender: FDA-Public Use
  Company Number: US-GILEAD-2008-0014934

PATIENT
  Sex: Female

DRUGS (11)
  1. LETAIRIS [Suspect]
     Indication: PULMONARY ARTERIAL HYPERTENSION
     Dates: start: 20070914, end: 20080110
  2. VICODIN [Concomitant]
     Dosage: PRN
     Dates: start: 20060614
  3. COZAAR [Concomitant]
     Dates: start: 20060614
  4. DETROL LA [Concomitant]
     Dates: start: 20060614
  5. LIPITOR [Concomitant]
     Dates: start: 20070410
  6. VENTAVIS [Concomitant]
     Dosage: 6 - 8 TREATMENTS/DAY
     Dates: start: 20070718
  7. NEURONTIN [Concomitant]
     Dates: start: 20070727
  8. COMBIVENT [Concomitant]
     Route: 055
     Dates: start: 20070917
  9. LASIX [Concomitant]
  10. LASIX [Concomitant]
     Dosage: 80 MG IN AM
     Dates: start: 20080110
  11. LASIX [Concomitant]
     Dosage: 40 MG IN PM
     Dates: start: 20080110

REACTIONS (1)
  - Oedema peripheral [None]
